FAERS Safety Report 8370379-7 (Version None)
Quarter: 2012Q2

REPORT INFORMATION
  Report Type: 
  Country: None (occurrence: None)
  Receive Date: 20120518
  Receipt Date: 20120507
  Transmission Date: 20120825
  Serious: Yes (Other)
  Sender: FDA-Public Use
  Company Number: US-JNJFOC-20120212299

PATIENT
  Sex: Female
  Weight: 65.32 kg

DRUGS (2)
  1. REMICADE [Suspect]
     Indication: RHEUMATOID ARTHRITIS
     Route: 042
     Dates: start: 20110101
  2. REMICADE [Suspect]
     Route: 042
     Dates: start: 20120101

REACTIONS (17)
  - TRACHEAL OBSTRUCTION [None]
  - PHARYNGEAL OEDEMA [None]
  - EYE SWELLING [None]
  - INFUSION RELATED REACTION [None]
  - WEIGHT INCREASED [None]
  - GASTROOESOPHAGEAL REFLUX DISEASE [None]
  - SWELLING [None]
  - COUGH [None]
  - PHARYNGITIS [None]
  - THROAT TIGHTNESS [None]
  - DYSPHAGIA [None]
  - FLUID RETENTION [None]
  - INFLAMMATION [None]
  - CHEST DISCOMFORT [None]
  - SWELLING FACE [None]
  - OESOPHAGEAL PAIN [None]
  - DYSPEPSIA [None]
